FAERS Safety Report 7489137-0 (Version None)
Quarter: 2011Q2

REPORT INFORMATION
  Report Type: 
  Country: None (occurrence: None)
  Receive Date: 20110518
  Receipt Date: 20110510
  Transmission Date: 20111010
  Serious: Yes (Life-Threatening)
  Sender: FDA-Public Use
  Company Number: JP-CELGENEUS-087-21880-11021709

PATIENT
  Sex: Male

DRUGS (29)
  1. DEXAMETHASONE [Suspect]
     Dosage: 20 MILLIGRAM
     Route: 048
     Dates: start: 20100927, end: 20100927
  2. BUFFERIN [Concomitant]
     Indication: PROPHYLAXIS
     Dosage: 81 MILLIGRAM
     Route: 048
     Dates: start: 20051111
  3. REVLIMID [Suspect]
     Dosage: 10 MILLIGRAM
     Route: 048
     Dates: start: 20100927, end: 20101016
  4. REVLIMID [Suspect]
     Dosage: 10 MILLIGRAM
     Route: 048
     Dates: start: 20101227, end: 20110109
  5. DEXAMETHASONE [Suspect]
     Dosage: 20 MILLIGRAM
     Route: 048
     Dates: start: 20101102, end: 20101102
  6. DEXAMETHASONE [Suspect]
     Dosage: 20 MILLIGRAM
     Route: 048
     Dates: start: 20110126, end: 20110126
  7. DEXAMETHASONE [Suspect]
     Dosage: 20 MILLIGRAM
     Route: 048
     Dates: start: 20100907, end: 20100907
  8. DEXAMETHASONE [Suspect]
     Dosage: 20 MILLIGRAM
     Route: 048
     Dates: start: 20101004, end: 20101004
  9. SINGULAIR [Concomitant]
     Indication: EMPHYSEMA
     Dosage: 10 MILLIGRAM
     Route: 048
     Dates: start: 20090504
  10. METHYCOBAL [Concomitant]
     Dosage: 1500 MICROGRAM
     Route: 048
     Dates: start: 20091014
  11. MUCODYNE [Concomitant]
     Indication: EMPHYSEMA
     Dosage: 1500 MILLIGRAM
     Route: 048
     Dates: start: 20090515
  12. DEXAMETHASONE [Suspect]
     Dosage: 20 MILLIGRAM
     Route: 048
     Dates: start: 20100831, end: 20100831
  13. REVLIMID [Suspect]
     Dosage: 15 MILLIGRAM
     Route: 048
     Dates: start: 20110228, end: 20110313
  14. DEXAMETHASONE [Suspect]
     Dosage: 20 MILLIGRAM
     Route: 048
     Dates: start: 20101011, end: 20101011
  15. DEXAMETHASONE [Suspect]
     Dosage: 20 MILLIGRAM
     Route: 048
     Dates: start: 20101227, end: 20101227
  16. DEXAMETHASONE [Suspect]
     Dosage: 20 MILLIGRAM
     Route: 048
     Dates: start: 20110103, end: 20110103
  17. DEXAMETHASONE [Suspect]
     Dosage: 20 MILLIGRAM
     Route: 048
     Dates: start: 20110228, end: 20110228
  18. ETODOLAC [Concomitant]
     Indication: ILL-DEFINED DISORDER
     Dosage: 200 MILLIGRAM
     Route: 048
     Dates: start: 20100222
  19. SPIRIVA [Concomitant]
     Indication: EMPHYSEMA
     Dosage: 18 MICROGRAM
     Route: 055
     Dates: start: 20090817
  20. DEXAMETHASONE [Suspect]
     Indication: MULTIPLE MYELOMA
     Dosage: 20 MILLIGRAM
     Route: 048
     Dates: start: 20100824, end: 20100824
  21. DEXAMETHASONE [Suspect]
     Dosage: 20 MILLIGRAM
     Route: 048
     Dates: start: 20110202, end: 20110202
  22. DEXAMETHASONE [Suspect]
     Dosage: 20 MILLIGRAM
     Route: 048
     Dates: start: 20110307, end: 20110307
  23. UNIPHYL LA [Concomitant]
     Indication: EMPHYSEMA
     Dosage: 200 MILLIGRAM
     Route: 048
     Dates: start: 20090504
  24. MAGNESIUM SULFATE [Concomitant]
     Dosage: 1980 MILLIGRAM
     Route: 048
     Dates: start: 20090302
  25. REVLIMID [Suspect]
     Indication: MULTIPLE MYELOMA
     Dosage: 10 MILLIGRAM
     Route: 048
     Dates: start: 20100824, end: 20100909
  26. REVLIMID [Suspect]
     Dosage: 10 MILLIGRAM
     Route: 048
     Dates: start: 20101101, end: 20101114
  27. REVLIMID [Suspect]
     Dosage: 15 MILLIGRAM
     Route: 048
     Dates: start: 20110126, end: 20110208
  28. DEXAMETHASONE [Suspect]
     Dosage: 20 MILLIGRAM
     Route: 048
     Dates: start: 20101109, end: 20101109
  29. MOHRUS TAPE [Concomitant]
     Indication: ILL-DEFINED DISORDER
     Dosage: 1 SHEET
     Route: 062
     Dates: start: 20100222

REACTIONS (6)
  - CARDIAC FAILURE [None]
  - NEUROPATHY PERIPHERAL [None]
  - ENDOTOXIC SHOCK [None]
  - NEUTROPENIA [None]
  - PNEUMONIA [None]
  - THROMBOCYTOPENIA [None]
